FAERS Safety Report 18540613 (Version 1)
Quarter: 2020Q4

REPORT INFORMATION
  Report Type: Spontaneous
  Country: US (occurrence: US)
  Receive Date: 20201124
  Receipt Date: 20201124
  Transmission Date: 20210114
  Serious: Yes (Life-Threatening, Hospitalization, Disabling)
  Sender: FDA-Public Use
  Company Number: None

PATIENT
  Age: 75 Year
  Sex: Male
  Weight: 74.25 kg

DRUGS (8)
  1. FINASTERIDE. [Concomitant]
     Active Substance: FINASTERIDE
  2. MELATONIN [Concomitant]
     Active Substance: MELATONIN
  3. ATORVASTATIN [Concomitant]
     Active Substance: ATORVASTATIN
  4. LOSARTAN. [Concomitant]
     Active Substance: LOSARTAN
  5. MELOXICAM. [Concomitant]
     Active Substance: MELOXICAM
  6. MULTIVITAMIN FOR SENIORS [Concomitant]
  7. KEYTRUDA [Suspect]
     Active Substance: PEMBROLIZUMAB
     Indication: MALIGNANT MELANOMA
     Dosage: ?          QUANTITY:1 INFUSION;OTHER FREQUENCY:EVERY 3 WEEKS;?
     Route: 042
     Dates: start: 20201002, end: 20201101
  8. TAMSULOSIN [Concomitant]
     Active Substance: TAMSULOSIN

REACTIONS (5)
  - Fatigue [None]
  - Diplopia [None]
  - Hypotonia [None]
  - Myalgia [None]
  - Muscle atrophy [None]

NARRATIVE: CASE EVENT DATE: 20201030
